FAERS Safety Report 11768827 (Version 1)
Quarter: 2015Q4

REPORT INFORMATION
  Report Type: Spontaneous
  Country: FR (occurrence: FR)
  Receive Date: 20151123
  Receipt Date: 20151123
  Transmission Date: 20160304
  Serious: Yes (Life-Threatening, Hospitalization, Other)
  Sender: FDA-Public Use
  Company Number: FR-BAXTER-2015BAX061537

PATIENT
  Age: 16 Year
  Sex: Female

DRUGS (12)
  1. VP-16 [Suspect]
     Active Substance: ETOPOSIDE
     Dosage: 3 COURSES
     Route: 065
     Dates: start: 201102
  2. HOLOXAN 2000 MG, POUDRE POUR USAGE PARENT?RAL [Suspect]
     Active Substance: IFOSFAMIDE
     Dosage: 3 G/M2, A COURSE
     Route: 042
     Dates: start: 20120406, end: 20120408
  3. VINCRISTINE HOSPIRA [Suspect]
     Active Substance: VINCRISTINE
     Indication: EWING^S SARCOMA
     Dosage: 2 MG, COURSE; STREGTH: 2MG/2ML
     Route: 042
     Dates: start: 20120406, end: 20120408
  4. DOXORUBICINE TEVA [Suspect]
     Active Substance: DOXORUBICIN
     Dosage: 32 MG, A COURSE; STRENGTH: 200MG/100ML,
     Route: 042
     Dates: start: 20120406, end: 20120408
  5. HOLOXAN 2000 MG, POUDRE POUR USAGE PARENT?RAL [Suspect]
     Active Substance: IFOSFAMIDE
     Dosage: 1.8 G/M2, A COURSE
     Route: 042
     Dates: start: 20120614, end: 20120618
  6. ETOPOSIDE TEVA [Suspect]
     Active Substance: ETOPOSIDE
     Dosage: 150 MG, A COURSE
     Route: 042
     Dates: start: 20120614, end: 20120618
  7. UROMITEXAN 5 G/50 ML, SOLUTION INJECTABLE POUR PERFUSION EN FLACON [Suspect]
     Active Substance: MESNA
     Indication: PROPHYLAXIS
     Dosage: 5652 MG
     Route: 042
     Dates: start: 20120406, end: 20120408
  8. HOLOXAN 2000 MG, POUDRE POUR USAGE PARENT?RAL [Suspect]
     Active Substance: IFOSFAMIDE
     Dosage: 3 COURCES
     Route: 042
     Dates: start: 201102
  9. ETOPOSIDE TEVA [Suspect]
     Active Substance: ETOPOSIDE
     Indication: EWING^S SARCOMA
     Dosage: 236 MG, A COURSE
     Route: 042
     Dates: start: 20120406, end: 20120408
  10. HOLOXAN 2000 MG, POUDRE POUR USAGE PARENT?RAL [Suspect]
     Active Substance: IFOSFAMIDE
     Indication: EWING^S SARCOMA
     Dosage: 5 COURCES OF INDUCTION
     Route: 042
     Dates: start: 201012
  11. DOXORUBICINE TEVA [Suspect]
     Active Substance: DOXORUBICIN
     Indication: EWING^S SARCOMA
     Dosage: 3 COURSES;
     Route: 042
  12. VP-16 [Suspect]
     Active Substance: ETOPOSIDE
     Indication: EWING^S SARCOMA
     Dosage: 5 COURCES OF INDUCTION
     Route: 065
     Dates: start: 201012

REACTIONS (11)
  - Candida sepsis [Recovered/Resolved]
  - Bone marrow failure [Recovered/Resolved]
  - Renal tubular disorder [Recovered/Resolved]
  - Food intolerance [Unknown]
  - Metastases to lung [Unknown]
  - Renal tubular disorder [Unknown]
  - Hyperphosphataemia [Unknown]
  - Hypokalaemia [Unknown]
  - Mucosal inflammation [Recovered/Resolved]
  - Hypomagnesaemia [Unknown]
  - Dehydration [Unknown]

NARRATIVE: CASE EVENT DATE: 2012
